FAERS Safety Report 14243609 (Version 1)
Quarter: 2017Q4

REPORT INFORMATION
  Report Type: Spontaneous
  Country: US (occurrence: None)
  Receive Date: 20171130
  Receipt Date: 20171130
  Transmission Date: 20180321
  Serious: No
  Sender: FDA-Public Use
  Company Number: None

PATIENT
  Age: 63 Year
  Sex: Male

DRUGS (1)
  1. FLECAINIDE [Suspect]
     Active Substance: FLECAINIDE
     Indication: ATRIAL FIBRILLATION
     Dosage: DATES OF USE - HAS BEEN ON FLECAINIDE FOR 8-10 YEARS
     Route: 048

REACTIONS (2)
  - Product quality issue [None]
  - Atrial fibrillation [None]

NARRATIVE: CASE EVENT DATE: 20171106
